FAERS Safety Report 4696173-6 (Version None)
Quarter: 2005Q2

REPORT INFORMATION
  Report Type: 
  Country: None (occurrence: None)
  Receive Date: 20050621
  Receipt Date: 20050610
  Transmission Date: 20051028
  Serious: Yes (Hospitalization)
  Sender: FDA-Public Use
  Company Number: JP-JNJFOC-20041207275

PATIENT
  Sex: Male
  Weight: 76 kg

DRUGS (26)
  1. REMICADE [Suspect]
     Dosage: 20TH DOSE
     Route: 042
  2. REMICADE [Suspect]
     Dosage: 19TH DOSE
     Route: 042
  3. REMICADE [Suspect]
     Dosage: 18TH DOSE
     Route: 042
  4. REMICADE [Suspect]
     Dosage: 17TH DOSE
     Route: 042
  5. REMICADE [Suspect]
     Dosage: 16TH DOSE
     Route: 042
  6. REMICADE [Suspect]
     Dosage: 15TH DOSE
     Route: 042
  7. REMICADE [Suspect]
     Dosage: 14TH DOSE
     Route: 042
  8. REMICADE [Suspect]
     Dosage: 13TH DOSE
     Route: 042
  9. REMICADE [Suspect]
     Dosage: 12TH DOSE
     Route: 042
  10. REMICADE [Suspect]
     Indication: CROHN'S DISEASE
     Dosage: FIRST DOSE
     Route: 042
  11. RHEUMATREX [Concomitant]
  12. PENTASA [Concomitant]
     Indication: CROHN'S DISEASE
     Route: 049
  13. LOPEMIN [Concomitant]
     Route: 049
  14. BIOFERMIN [Concomitant]
     Route: 049
  15. BIOFERMIN [Concomitant]
     Route: 049
  16. BIOFERMIN [Concomitant]
     Route: 049
  17. PREDONINE [Concomitant]
  18. PREDONINE [Concomitant]
  19. PREDONINE [Concomitant]
  20. PREDONINE [Concomitant]
  21. IMURAN [Concomitant]
     Indication: CROHN'S DISEASE
  22. FERROMINE [Concomitant]
  23. WARFARIN [Concomitant]
  24. WARFARIN [Concomitant]
  25. WARFARIN [Concomitant]
  26. WARFARIN [Concomitant]

REACTIONS (3)
  - INTESTINAL STENOSIS [None]
  - PYELONEPHRITIS [None]
  - URINARY TRACT NEOPLASM [None]
